FAERS Safety Report 4345722-6 (Version None)
Quarter: 2004Q2

REPORT INFORMATION
  Report Type: 
  Country: None (occurrence: None)
  Receive Date: 20040421
  Receipt Date: 20040409
  Transmission Date: 20050107
  Serious: No
  Sender: FDA-Public Use
  Company Number: 04P-056-0256923-00

PATIENT
  Sex: Female

DRUGS (1)
  1. DEPAKOTE [Suspect]
     Dosage: 1000 MG, 1IN 1 D, ORAL
     Route: 048

REACTIONS (4)
  - AGITATION [None]
  - CONFUSIONAL STATE [None]
  - DISSOCIATION [None]
  - PARADOXICAL DRUG REACTION [None]
